FAERS Safety Report 16208068 (Version 1)
Quarter: 2019Q2

REPORT INFORMATION
  Report Type: Spontaneous
  Country: US (occurrence: US)
  Receive Date: 20190417
  Receipt Date: 20190417
  Transmission Date: 20190711
  Serious: Yes (Hospitalization)
  Sender: FDA-Public Use
  Company Number: US-TEVA-2019-US-1038595

PATIENT
  Age: 54 Year
  Sex: Female

DRUGS (1)
  1. MINOXIDIL. [Suspect]
     Active Substance: MINOXIDIL
     Dosage: SOLUTION, EQUATING TO 600MG OF MINOXIDIL
     Route: 048

REACTIONS (6)
  - Prescription drug used without a prescription [Recovered/Resolved]
  - Hypotension [Recovered/Resolved]
  - Myocardial infarction [Recovered/Resolved]
  - Accidental poisoning [Recovered/Resolved]
  - Accidental overdose [Recovered/Resolved]
  - Ischaemia [Recovered/Resolved]
